FAERS Safety Report 7438832-8 (Version None)
Quarter: 2011Q2

REPORT INFORMATION
  Report Type: 
  Country: None (occurrence: None)
  Receive Date: 20110426
  Receipt Date: 20110420
  Transmission Date: 20111010
  Serious: Yes (Hospitalization, Other)
  Sender: FDA-Public Use
  Company Number: US-ABBOTT-11P-163-0720638-00

PATIENT
  Sex: Male
  Weight: 75.364 kg

DRUGS (1)
  1. HUMIRA [Suspect]
     Indication: CROHN'S DISEASE
     Dates: start: 20101001

REACTIONS (4)
  - THIRST [None]
  - POLLAKIURIA [None]
  - VISION BLURRED [None]
  - BLOOD GLUCOSE INCREASED [None]
